FAERS Safety Report 8181105-9 (Version None)
Quarter: 2012Q1

REPORT INFORMATION
  Report Type: 
  Country: None (occurrence: None)
  Receive Date: 20120302
  Receipt Date: 20120223
  Transmission Date: 20120608
  Serious: Yes (Hospitalization)
  Sender: FDA-Public Use
  Company Number: US-MILLENNIUM PHARMACEUTICALS, INC.-2012-01289

PATIENT
  Sex: Female

DRUGS (3)
  1. VELCADE [Suspect]
     Dosage: UNK
     Route: 042
     Dates: start: 20120101
  2. LEUKERAN [Suspect]
     Dosage: UNK
     Route: 048
     Dates: start: 20120101
  3. MATULANE [Suspect]
     Dosage: 150 MG, UNK
     Route: 048
     Dates: start: 20120106

REACTIONS (3)
  - HYPOPHAGIA [None]
  - MOUTH ULCERATION [None]
  - DEHYDRATION [None]
